FAERS Safety Report 26161160 (Version 1)
Quarter: 2025Q4

REPORT INFORMATION
  Report Type: Spontaneous
  Country: US (occurrence: US)
  Receive Date: 20251216
  Receipt Date: 20251216
  Transmission Date: 20260117
  Serious: Yes (Other)
  Sender: JOHNSON AND JOHNSON
  Company Number: US-JNJFOC-20251216630

PATIENT
  Age: 56 Year
  Sex: Male

DRUGS (2)
  1. INFLIXIMAB [Suspect]
     Active Substance: INFLIXIMAB
     Indication: Crohn^s disease
     Route: 041
  2. BUDESONIDE [Concomitant]
     Active Substance: BUDESONIDE
     Indication: Crohn^s disease
     Route: 048

REACTIONS (5)
  - Lupus-like syndrome [Unknown]
  - Pneumatosis intestinalis [Unknown]
  - Pericardial effusion [Recovered/Resolved]
  - Cardiac tamponade [Unknown]
  - Pleural effusion [Unknown]
